FAERS Safety Report 5099362-4 (Version None)
Quarter: 2006Q3

REPORT INFORMATION
  Report Type: 
  Country: None (occurrence: None)
  Receive Date: 20060731
  Receipt Date: 20060601
  Transmission Date: 20061208
  Serious: No
  Sender: FDA-Public Use
  Company Number: 2006PV014864

PATIENT
  Age: 50 Year
  Sex: Female

DRUGS (1)
  1. BYETTA [Suspect]
     Indication: DIABETES MELLITUS NON-INSULIN-DEPENDENT
     Dosage: 5 MCG; BID; SC
     Route: 058
     Dates: start: 20060508

REACTIONS (7)
  - BLOOD GLUCOSE DECREASED [None]
  - DRUG INEFFECTIVE [None]
  - FATIGUE [None]
  - HYPOGLYCAEMIA UNAWARENESS [None]
  - INJECTION SITE BRUISING [None]
  - INJECTION SITE EXTRAVASATION [None]
  - NAUSEA [None]
